FAERS Safety Report 4389314-1 (Version None)
Quarter: 2004Q2

REPORT INFORMATION
  Report Type: 
  Country: None (occurrence: None)
  Receive Date: 20040628
  Receipt Date: 20040618
  Transmission Date: 20050107
  Serious: Yes (Hospitalization, Other)
  Sender: FDA-Public Use
  Company Number: KII-2004-0011547

PATIENT
  Age: 49 Year
  Sex: Male

DRUGS (6)
  1. MS CONTIN [Suspect]
     Indication: PAIN
     Dosage: 30 MG, SEE TEXT, ORAL
     Route: 048
  2. TRICYCLIC ANTIDEPRESSANTS  (TRICYCLIC ANTIDEPRESSANTS) [Suspect]
  3. ASA IN COMBINATION WITH OTHER NARCOTIC OR NARCOTIC ANALOG [Concomitant]
  4. ANTIPSYCHOTICS [Concomitant]
  5. MUSCLE RELAXANTS [Concomitant]
  6. PENTAZOCINE LACTATE [Concomitant]

REACTIONS (22)
  - ACIDOSIS [None]
  - AGITATION [None]
  - BLOOD CALCIUM DECREASED [None]
  - BLOOD SODIUM DECREASED [None]
  - BLOOD UREA INCREASED [None]
  - CENTRAL NERVOUS SYSTEM INFECTION [None]
  - DRUG SCREEN POSITIVE [None]
  - ELECTROCARDIOGRAM QRS COMPLEX PROLONGED [None]
  - ELECTROLYTE IMBALANCE [None]
  - HALLUCINATION [None]
  - HEART RATE INCREASED [None]
  - HYPERKALAEMIA [None]
  - HYPOXIA [None]
  - LETHARGY [None]
  - OVERDOSE [None]
  - RHONCHI [None]
  - SHIFT TO THE LEFT [None]
  - SOMNOLENCE [None]
  - TACHYCARDIA [None]
  - URINARY TRACT OBSTRUCTION [None]
  - URINE OUTPUT INCREASED [None]
  - WHITE BLOOD CELL COUNT INCREASED [None]
